FAERS Safety Report 23952988 (Version 1)
Quarter: 2024Q2

REPORT INFORMATION
  Report Type: Other
  Country: US (occurrence: None)
  Receive Date: 20240608
  Receipt Date: 20240608
  Transmission Date: 20240716
  Serious: No
  Sender: FDA-Public Use
  Company Number: US-ROCHE-3161785

PATIENT
  Age: 45 Year
  Sex: Female
  Weight: 90.8 kg

DRUGS (5)
  1. OCREVUS [Suspect]
     Active Substance: OCRELIZUMAB
     Indication: Relapsing-remitting multiple sclerosis
     Dosage: DATE OF TREATMENT: 06/OCT/2020, 14/OCT/2020, 06/APR/2021, 20/OCT/2020, 14/OCT/2021. THE LAST DATE OF
     Route: 042
     Dates: start: 2020
  2. TRINTELLIX [Concomitant]
     Active Substance: VORTIOXETINE HYDROBROMIDE
     Indication: Anxiety
     Route: 048
     Dates: start: 2021
  3. APLENZIN [Concomitant]
     Active Substance: BUPROPION HYDROBROMIDE
     Route: 048
     Dates: start: 2022
  4. GILENYA [Concomitant]
     Active Substance: FINGOLIMOD HYDROCHLORIDE
  5. BETASERON [Concomitant]
     Active Substance: INTERFERON BETA-1B

REACTIONS (9)
  - Hyperhidrosis [Not Recovered/Not Resolved]
  - Balance disorder [Not Recovered/Not Resolved]
  - Muscular weakness [Not Recovered/Not Resolved]
  - Weight increased [Not Recovered/Not Resolved]
  - Anxiety [Not Recovered/Not Resolved]
  - Off label use [Unknown]
  - Clostridium difficile infection [Recovered/Resolved with Sequelae]
  - Malabsorption [Not Recovered/Not Resolved]
  - Weight decreased [Not Recovered/Not Resolved]

NARRATIVE: CASE EVENT DATE: 20200101
